FAERS Safety Report 5489507-6 (Version None)
Quarter: 2007Q4

REPORT INFORMATION
  Report Type: 
  Country: None (occurrence: None)
  Receive Date: 20071016
  Receipt Date: 20071016
  Transmission Date: 20080405
  Serious: Yes (Hospitalization)
  Sender: FDA-Public Use
  Company Number: None

PATIENT
  Age: 48 Year
  Sex: Male

DRUGS (1)
  1. VALPROIC ACID [Suspect]
     Indication: BIPOLAR I DISORDER
     Dosage: 875MG EVERY DAY PO
     Route: 048
     Dates: start: 20071009, end: 20071009

REACTIONS (3)
  - DENTAL DISCOMFORT [None]
  - HYPERAMMONAEMIA [None]
  - OVERDOSE [None]
